FAERS Safety Report 7247742-0 (Version None)
Quarter: 2011Q1

REPORT INFORMATION
  Report Type: 
  Country: None (occurrence: None)
  Receive Date: 20110127
  Receipt Date: 20110124
  Transmission Date: 20110831
  Serious: Yes (Other)
  Sender: FDA-Public Use
  Company Number: US-ROXANE LABORATORIES, INC.-2011-RO-00096RO

PATIENT
  Age: 68 Year
  Sex: Male

DRUGS (5)
  1. OMEPRAZOLE [Suspect]
     Dosage: 20 MG
  2. COLCHICINE [Suspect]
     Dosage: 0.6 MG
  3. TAMSULOSIN HYDROCHLORIDE [Suspect]
     Dosage: 0.4 MG
  4. NAPROXEN [Suspect]
     Indication: PAIN
  5. QUINAPRIL [Suspect]
     Dosage: 10 MG

REACTIONS (2)
  - ANGIOEDEMA [None]
  - DRUG INTERACTION [None]
